FAERS Safety Report 8527269 (Version 4)
Quarter: 2012Q4

REPORT INFORMATION
  Report Type: 
  Country: CL (occurrence: CL)
  Receive Date: 20120424
  Receipt Date: 20120830
  Transmission Date: 20130627
  Serious: Yes (Death, Hospitalization, Other)
  Sender: FDA-Public Use
  Company Number: PHHY2012CL034090

PATIENT
  Sex: Female

DRUGS (2)
  1. GLIVEC [Suspect]
     Indication: GASTROINTESTINAL STROMAL TUMOUR
     Dosage: 400 mg, UNK
     Route: 048
     Dates: start: 2010
  2. GLIVEC [Suspect]
     Dosage: 600 mg
     Route: 048
     Dates: start: 20120625

REACTIONS (14)
  - Death [Fatal]
  - General physical health deterioration [Unknown]
  - Neoplasm progression [Unknown]
  - Malignant neoplasm progression [Unknown]
  - Intestinal obstruction [Recovered/Resolved]
  - Abdominal pain [Unknown]
  - Dyspepsia [Unknown]
  - Vomiting [Unknown]
  - Nausea [Unknown]
  - Diarrhoea [Recovered/Resolved]
  - Aphagia [Unknown]
  - Dehydration [Unknown]
  - Asthenia [Unknown]
  - Gastrointestinal stromal tumour [None]
